FAERS Safety Report 4293893-2 (Version None)
Quarter: 2004Q1

REPORT INFORMATION
  Report Type: 
  Country: None (occurrence: None)
  Receive Date: 20040211
  Receipt Date: 20040130
  Transmission Date: 20041129
  Serious: Yes (Hospitalization)
  Sender: FDA-Public Use
  Company Number: UK052721

PATIENT
  Age: 71 Year
  Sex: Male

DRUGS (8)
  1. NESPO [Suspect]
     Indication: APLASTIC ANAEMIA
     Dosage: 60 MCG, WEEKLY, SC
     Route: 058
     Dates: start: 20030905, end: 20031008
  2. NIFEDIPINE [Concomitant]
  3. FUROSEMIDE [Concomitant]
  4. RANITIDINE [Concomitant]
  5. DIGOXIN [Concomitant]
  6. SALBUTAMOL [Concomitant]
  7. BECLOMETHASONE DIPROPIONATE [Concomitant]
  8. OXYGEN [Concomitant]

REACTIONS (4)
  - AZOTAEMIA [None]
  - DISEASE PROGRESSION [None]
  - HAEMODIALYSIS [None]
  - RENAL IMPAIRMENT [None]
